FAERS Safety Report 9703607 (Version 1)
Quarter: 2013Q4

REPORT INFORMATION
  Report Type: Spontaneous
  Country: US (occurrence: US)
  Receive Date: 20131122
  Receipt Date: 20131122
  Transmission Date: 20140711
  Serious: No
  Sender: FDA-Public Use
  Company Number: US-PFIZER INC-2013331341

PATIENT
  Age: 15 Year
  Sex: Male
  Weight: 58.95 kg

DRUGS (1)
  1. ADVIL [Suspect]
     Indication: BACK PAIN
     Dosage: 200MG, ONCE
     Dates: start: 201311, end: 201311

REACTIONS (1)
  - Nausea [Recovered/Resolved]
